FAERS Safety Report 7444610-6 (Version None)
Quarter: 2011Q2

REPORT INFORMATION
  Report Type: 
  Country: None (occurrence: None)
  Receive Date: 20110420
  Receipt Date: 20110405
  Transmission Date: 20111010
  Serious: Yes (Hospitalization, Other)
  Sender: FDA-Public Use
  Company Number: 21-703-2011-00003

PATIENT
  Age: 47 Year
  Sex: Female
  Weight: 3.75 kg

DRUGS (2)
  1. PRISMASOL B22GK 2/0 [Suspect]
     Dosage: HEMODIALYSIS, INTRAVENOUS
     Route: 042
     Dates: start: 20110309, end: 20110401
  2. PRISMAFLEX [Concomitant]

REACTIONS (1)
  - THROMBOCYTOPENIA [None]
